FAERS Safety Report 5972939-7 (Version None)
Quarter: 2008Q4

REPORT INFORMATION
  Report Type: 
  Country: None (occurrence: None)
  Receive Date: 20081201
  Receipt Date: 20081120
  Transmission Date: 20090506
  Serious: Yes (Other)
  Sender: FDA-Public Use
  Company Number: PHHY2008BR29182

PATIENT
  Age: 19 Year
  Sex: Male
  Weight: 56 kg

DRUGS (3)
  1. TEGRETOL [Suspect]
     Indication: EPILEPSY
     Dosage: 400 MG
     Route: 048
     Dates: start: 20080601
  2. TEGRETOL [Suspect]
     Indication: EPILEPSY
     Dosage: 400 MG
     Route: 048
  3. LAMOTRIGINE [Concomitant]
     Indication: EPILEPSY
     Dosage: 100 MG
     Route: 048
     Dates: start: 20040101

REACTIONS (3)
  - DECREASED INTEREST [None]
  - DRUG DISPENSING ERROR [None]
  - SOMNOLENCE [None]
